FAERS Safety Report 16526266 (Version 1)
Quarter: 2019Q3

REPORT INFORMATION
  Report Type: Spontaneous
  Country: SE (occurrence: SE)
  Receive Date: 20190703
  Receipt Date: 20190703
  Transmission Date: 20191004
  Serious: Yes (Hospitalization)
  Sender: FDA-Public Use
  Company Number: SE-SA-2019SA173938

PATIENT
  Age: 25 Year
  Sex: Male

DRUGS (5)
  1. DIAZEPAM. [Suspect]
     Active Substance: DIAZEPAM
     Dosage: 20 MG, UNK
     Route: 048
     Dates: start: 20190205, end: 20190205
  2. PROMETHAZINE HYDROCHLORIDE. [Suspect]
     Active Substance: PROMETHAZINE HYDROCHLORIDE
     Dosage: 500 MG, UNK
     Route: 048
     Dates: start: 20190205, end: 20190205
  3. MELATONIN [Suspect]
     Active Substance: MELATONIN
     Dosage: ^50 ST MELATONIN^
     Route: 048
     Dates: start: 20190205, end: 20190205
  4. PROPAVAN [Suspect]
     Active Substance: PROPIOMAZINE
     Dosage: ^35 PROPAVAN^
     Route: 048
     Dates: start: 20190205, end: 20190205
  5. LAMOTRIGINE. [Suspect]
     Active Substance: LAMOTRIGINE
     Dosage: 1200 MG, UNK
     Route: 048
     Dates: start: 20190205, end: 20190205

REACTIONS (3)
  - Depressed level of consciousness [Unknown]
  - Intentional overdose [Unknown]
  - Intentional self-injury [Unknown]

NARRATIVE: CASE EVENT DATE: 20190205
